FAERS Safety Report 23496548 (Version 1)
Quarter: 2024Q1

REPORT INFORMATION
  Report Type: Spontaneous
  Country: US (occurrence: US)
  Receive Date: 20240208
  Receipt Date: 20240208
  Transmission Date: 20240410
  Serious: No
  Sender: FDA-Public Use
  Company Number: US-002147023-NVSC2024US027599

PATIENT
  Age: 79 Year
  Sex: Male
  Weight: 0.45 kg

DRUGS (9)
  1. LEQVIO [Suspect]
     Active Substance: INCLISIRAN SODIUM
     Indication: Low density lipoprotein increased
     Dosage: 284MG/1.5ML
     Route: 058
     Dates: start: 20230801, end: 20240206
  2. LEQVIO [Suspect]
     Active Substance: INCLISIRAN SODIUM
     Indication: Arteriosclerosis
  3. GLIPIZIDE [Concomitant]
     Active Substance: GLIPIZIDE
     Indication: Arteriosclerosis
     Dosage: 5 MG, BID
     Route: 065
  4. METFORMIN [Concomitant]
     Active Substance: METFORMIN HYDROCHLORIDE
     Indication: Arteriosclerosis
     Dosage: 1000 MG, BID
     Route: 065
  5. ZETIA [Concomitant]
     Active Substance: EZETIMIBE
     Indication: Arteriosclerosis
     Dosage: 10 MG, QD
     Route: 065
  6. PRAVASTATIN [Concomitant]
     Active Substance: PRAVASTATIN
     Indication: Arteriosclerosis
     Dosage: 20 MG
     Route: 065
  7. ISOSORBIDE [Concomitant]
     Active Substance: ISOSORBIDE
     Indication: Arteriosclerosis
     Dosage: 300 MG, QD
     Route: 065
  8. LOSARTAN [Concomitant]
     Active Substance: LOSARTAN
     Indication: Arteriosclerosis
     Dosage: 50 MG, QD
     Route: 065
  9. METOPROLOL SUCCINATE [Concomitant]
     Active Substance: METOPROLOL SUCCINATE
     Indication: Arteriosclerosis
     Dosage: 25 MG, QD
     Route: 065

REACTIONS (4)
  - Therapeutic product effect decreased [Not Recovered/Not Resolved]
  - Blood cholesterol decreased [Unknown]
  - Blood triglycerides increased [Unknown]
  - High density lipoprotein decreased [Unknown]

NARRATIVE: CASE EVENT DATE: 20230801
